FAERS Safety Report 8230230-2 (Version None)
Quarter: 2012Q1

REPORT INFORMATION
  Report Type: 
  Country: None (occurrence: None)
  Receive Date: 20120321
  Receipt Date: 20120321
  Transmission Date: 20120608
  Serious: Yes (Hospitalization)
  Sender: FDA-Public Use
  Company Number: None

PATIENT
  Age: 78 Year
  Sex: Male
  Weight: 85.9 kg

DRUGS (1)
  1. AMLODIPINE [Suspect]
     Indication: HYPERTENSION
     Dosage: 10 MG EVERY DAY PO
     Route: 048
     Dates: start: 20090821, end: 20120215

REACTIONS (4)
  - SWOLLEN TONGUE [None]
  - DYSPHAGIA [None]
  - PHARYNGEAL OEDEMA [None]
  - ANGIOEDEMA [None]
